FAERS Safety Report 6378408-7 (Version None)
Quarter: 2009Q3

REPORT INFORMATION
  Report Type: 
  Country: None (occurrence: None)
  Receive Date: 20090925
  Receipt Date: 20090709
  Transmission Date: 20100115
  Serious: No
  Sender: FDA-Public Use
  Company Number: US-ASTRAZENECA-2009UW12659

PATIENT
  Age: 45 Year
  Sex: Female
  Weight: 119.3 kg

DRUGS (10)
  1. SEROQUEL [Suspect]
     Indication: BIPOLAR DISORDER
     Dosage: 50 MG TO 200 MG
     Route: 048
     Dates: start: 19970101
  2. RISPERDAL [Concomitant]
     Dates: start: 19930101, end: 19990101
  3. ZYPREXA [Concomitant]
     Dates: start: 19960101, end: 19990101
  4. ABILIFY [Concomitant]
     Dates: start: 20081020
  5. TRAZODONE HCL [Concomitant]
     Dates: start: 19960101, end: 20000101
  6. AMITRIPTYLINE [Concomitant]
     Dates: start: 20050406, end: 20060101
  7. PROZAC [Concomitant]
     Dates: start: 20050101, end: 20060101
  8. WELLBUTRIN [Concomitant]
     Dates: start: 20050101, end: 20060101
  9. WELLBUTRIN [Concomitant]
     Dates: start: 20090603
  10. LITHIUM [Concomitant]
     Dates: start: 20050101

REACTIONS (3)
  - BLOOD CHOLESTEROL INCREASED [None]
  - OBESITY [None]
  - TYPE 1 DIABETES MELLITUS [None]
